FAERS Safety Report 5159606-7 (Version None)
Quarter: 2006Q4

REPORT INFORMATION
  Report Type: 
  Country: None (occurrence: None)
  Receive Date: 20061129
  Receipt Date: 20061114
  Transmission Date: 20070319
  Serious: Yes (Hospitalization, Disabling, Other)
  Sender: FDA-Public Use
  Company Number: IE-JNJFOC-20060604948

PATIENT
  Age: 68 Year
  Sex: Female

DRUGS (4)
  1. HALOPERIDOL [Suspect]
     Indication: VOMITING
     Route: 048
  2. HALOPERIDOL [Suspect]
     Indication: NAUSEA
     Dosage: AT NIGHT
     Route: 048
  3. CYCLIZINE [Concomitant]
     Indication: VOMITING
     Route: 048
  4. CYCLIZINE [Concomitant]
     Indication: NAUSEA
     Route: 048

REACTIONS (6)
  - BRADYKINESIA [None]
  - COGWHEEL RIGIDITY [None]
  - HYPERCALCAEMIA [None]
  - MASKED FACIES [None]
  - MUSCULOSKELETAL STIFFNESS [None]
  - SALIVARY HYPERSECRETION [None]
